FAERS Safety Report 20689843 (Version 2)
Quarter: 2022Q3

REPORT INFORMATION
  Report Type: Spontaneous
  Country: US (occurrence: US)
  Receive Date: 20220408
  Receipt Date: 20220816
  Transmission Date: 20221026
  Serious: No
  Sender: FDA-Public Use
  Company Number: US-PFIZER INC-202200531233

PATIENT
  Age: 80 Year
  Sex: Male
  Weight: 59.87 kg

DRUGS (1)
  1. PAXLOVID [Suspect]
     Active Substance: NIRMATRELVIR\RITONAVIR
     Indication: COVID-19 treatment
     Dosage: 3 TABLETS BY MOUTH DAILY FOR 5 DAYS
     Route: 048
     Dates: start: 20220402

REACTIONS (3)
  - Dyspnoea [Unknown]
  - Poor quality sleep [Unknown]
  - Product prescribing error [Unknown]
